FAERS Safety Report 7070969-8 (Version None)
Quarter: 2010Q4

REPORT INFORMATION
  Report Type: 
  Country: None (occurrence: None)
  Receive Date: 20101027
  Receipt Date: 20101027
  Transmission Date: 20110411
  Serious: Yes (Hospitalization)
  Sender: FDA-Public Use
  Company Number: None

PATIENT
  Sex: Male
  Weight: 106.5953 kg

DRUGS (2)
  1. LEVAQUIN [Suspect]
     Indication: BRONCHITIS
     Dosage: 500MG 2 TIMES PER DAY PO
     Route: 048
     Dates: start: 20040108, end: 20040118
  2. CIPRO [Suspect]
     Indication: BRONCHITIS
     Dosage: 500MG 2 TIMES PER DAY PO
     Route: 048
     Dates: start: 20050210, end: 20050220

REACTIONS (9)
  - ANXIETY [None]
  - DISTURBANCE IN ATTENTION [None]
  - FATIGUE [None]
  - MEMORY IMPAIRMENT [None]
  - MUSCLE TWITCHING [None]
  - MUSCULAR WEAKNESS [None]
  - MYALGIA [None]
  - PAIN [None]
  - THERAPEUTIC AGENT TOXICITY [None]
